FAERS Safety Report 4526826-1 (Version None)
Quarter: 2004Q4

REPORT INFORMATION
  Report Type: 
  Country: None (occurrence: None)
  Receive Date: 20041213
  Receipt Date: 20041130
  Transmission Date: 20050328
  Serious: Yes (Death)
  Sender: FDA-Public Use
  Company Number: 2004097045

PATIENT
  Age: 36 Year
  Sex: Female

DRUGS (1)
  1. GEODON [Suspect]
     Indication: SCHIZOAFFECTIVE DISORDER
     Dosage: 80 MG (40 MG, 2 IN 1 D),

REACTIONS (1)
  - SUDDEN DEATH [None]
